FAERS Safety Report 7621319-7 (Version None)
Quarter: 2011Q3

REPORT INFORMATION
  Report Type: 
  Country: None (occurrence: None)
  Receive Date: 20110719
  Receipt Date: 20110707
  Transmission Date: 20111222
  Serious: Yes (Hospitalization)
  Sender: FDA-Public Use
  Company Number: IL-ELI_LILLY_AND_COMPANY-IL201106004368

PATIENT
  Sex: Male

DRUGS (8)
  1. METFORMIN HCL [Concomitant]
     Dosage: UNK
  2. HUMALOG [Suspect]
     Indication: TYPE 2 DIABETES MELLITUS
     Dosage: UNK
     Dates: start: 20110308
  3. PLACEBO [Concomitant]
     Dosage: UNK
  4. RAMIPRIL [Concomitant]
  5. ASPIRIN [Concomitant]
     Dosage: UNK
     Dates: start: 20110303
  6. HUMALOG MIX 75/25 [Suspect]
     Indication: TYPE 2 DIABETES MELLITUS
     Dosage: UNK
  7. SAXAGLIPTIN [Concomitant]
     Indication: TYPE 2 DIABETES MELLITUS
     Dosage: UNK
     Dates: start: 20110303
  8. GLIMEPIRIDE [Concomitant]
     Dosage: UNK
     Dates: start: 20110612

REACTIONS (2)
  - RENAL FAILURE CHRONIC [None]
  - HYPOGLYCAEMIA [None]
